FAERS Safety Report 21846782 (Version 1)
Quarter: 2023Q1

REPORT INFORMATION
  Report Type: Spontaneous
  Country: FR (occurrence: FR)
  Receive Date: 20230111
  Receipt Date: 20230111
  Transmission Date: 20230417
  Serious: Yes (Hospitalization, Other)
  Sender: FDA-Public Use
  Company Number: None

PATIENT
  Age: 72 Year
  Sex: Male
  Weight: 68 kg

DRUGS (2)
  1. NPLATE [Suspect]
     Active Substance: ROMIPLOSTIM
     Indication: Bone marrow failure
     Dosage: 500 MICROGRAM, QWK
     Route: 058
     Dates: start: 20210818
  2. CYANOCOBALAMIN [Suspect]
     Active Substance: CYANOCOBALAMIN
     Indication: Anaemia
     Dosage: 1000 MICROGRAM, QD
     Route: 048
     Dates: start: 20210818

REACTIONS (1)
  - Facial paralysis [Recovered/Resolved]

NARRATIVE: CASE EVENT DATE: 20220917
